FAERS Safety Report 4998529-0 (Version None)
Quarter: 2006Q2

REPORT INFORMATION
  Report Type: 
  Country: None (occurrence: None)
  Receive Date: 20060508
  Receipt Date: 20060424
  Transmission Date: 20061013
  Serious: Yes (Disabling, Other)
  Sender: FDA-Public Use
  Company Number: SUS1-2006-00298

PATIENT
  Age: 17 Year
  Sex: Male

DRUGS (2)
  1. PENTASA [Suspect]
     Indication: ENTERITIS
     Dates: start: 20000101, end: 20020917
  2. PENTASA [Suspect]
     Indication: ENTERITIS
     Dates: start: 20021201, end: 20030115

REACTIONS (4)
  - IRON DEFICIENCY [None]
  - NEPHROPATHY TOXIC [None]
  - RENAL DISORDER [None]
  - RENAL IMPAIRMENT [None]
